FAERS Safety Report 9792412 (Version 1)
Quarter: 2014Q1

REPORT INFORMATION
  Report Type: Spontaneous
  Country: US (occurrence: US)
  Receive Date: 20140102
  Receipt Date: 20140102
  Transmission Date: 20141002
  Serious: No
  Sender: FDA-Public Use
  Company Number: US-BIOGENIDEC-2013BI123303

PATIENT
  Age: 67 Year
  Sex: Male

DRUGS (12)
  1. TECFIDERA [Suspect]
     Indication: MULTIPLE SCLEROSIS
     Route: 048
  2. TECFIDERA [Suspect]
     Indication: MULTIPLE SCLEROSIS
     Route: 048
  3. HYDROCHLOROTHIAZIDE [Concomitant]
  4. KLONOPIN [Concomitant]
  5. CARVEDILOL [Concomitant]
  6. SIMVASTATIN [Concomitant]
  7. ZOLPIDEM [Concomitant]
  8. VITAMIN D [Concomitant]
  9. OMEPRAZOLE [Concomitant]
  10. GABAPENTIN [Concomitant]
  11. BENZONATATE [Concomitant]
  12. PROZAC [Concomitant]

REACTIONS (2)
  - Fatigue [Unknown]
  - Abdominal discomfort [Unknown]
